FAERS Safety Report 21971325 (Version 1)
Quarter: 2023Q1

REPORT INFORMATION
  Report Type: Spontaneous
  Country: US (occurrence: US)
  Receive Date: 20230209
  Receipt Date: 20230209
  Transmission Date: 20230417
  Serious: No
  Sender: FDA-Public Use
  Company Number: US-ABBVIE-4299611

PATIENT

DRUGS (8)
  1. SKYRIZI [Suspect]
     Active Substance: RISANKIZUMAB-RZAA
     Indication: Torticollis
     Route: 058
     Dates: start: 20210331, end: 20221020
  2. GLIPIZIDE BP [Concomitant]
     Indication: Product used for unknown indication
  3. ENSTILAR [Concomitant]
     Active Substance: BETAMETHASONE DIPROPIONATE\CALCIPOTRIENE HYDRATE
     Indication: Product used for unknown indication
  4. APPLE CIDER VINEGAR [Concomitant]
     Active Substance: APPLE CIDER VINEGAR
     Indication: Product used for unknown indication
  5. DENTAN [Concomitant]
     Active Substance: SODIUM FLUORIDE
     Indication: Product used for unknown indication
  6. AZITHROMYCIN [Concomitant]
     Active Substance: AZITHROMYCIN
     Indication: Product used for unknown indication
  7. BIOTIN [Concomitant]
     Active Substance: BIOTIN
     Indication: Product used for unknown indication
  8. TRIAMCINOLONE ACETONIDE [Concomitant]
     Active Substance: TRIAMCINOLONE ACETONIDE
     Indication: Product used for unknown indication

REACTIONS (1)
  - Drug ineffective [Not Recovered/Not Resolved]
